FAERS Safety Report 20535508 (Version 1)
Quarter: 2022Q1

REPORT INFORMATION
  Report Type: Spontaneous
  Country: US (occurrence: US)
  Receive Date: 20220302
  Receipt Date: 20220302
  Transmission Date: 20220424
  Serious: Yes (Hospitalization)
  Sender: FDA-Public Use
  Company Number: US-SA-SAC20220225001135

PATIENT
  Age: 56 Year
  Sex: Female

DRUGS (1)
  1. DUPIXENT [Suspect]
     Active Substance: DUPILUMAB
     Dosage: 600MG 1X
     Route: 058
     Dates: start: 20220214, end: 20220214

REACTIONS (6)
  - Fall [Unknown]
  - Neuralgia [Unknown]
  - Burning sensation [Unknown]
  - Hypoaesthesia [Unknown]
  - Gait inability [Unknown]
  - Condition aggravated [Unknown]

NARRATIVE: CASE EVENT DATE: 20220215
